FAERS Safety Report 11844083 (Version 2)
Quarter: 2019Q2

REPORT INFORMATION
  Report Type: Spontaneous
  Country: GB (occurrence: GB)
  Receive Date: 20151217
  Receipt Date: 20190513
  Transmission Date: 20190711
  Serious: Yes (Hospitalization, Disabling)
  Sender: FDA-Public Use
  Company Number: GB-ROCHE-790421366001

PATIENT
  Age: 53 Year
  Sex: Female

DRUGS (1)
  1. VALIUM [Suspect]
     Active Substance: DIAZEPAM
     Indication: PREMEDICATION
     Route: 013

REACTIONS (2)
  - Incorrect route of product administration [Unknown]
  - Ischaemia [Recovered/Resolved with Sequelae]
